FAERS Safety Report 8835536 (Version 1)
Quarter: 2012Q4

REPORT INFORMATION
  Report Type: 
  Country: IT (occurrence: IT)
  Receive Date: 20121011
  Receipt Date: 20121011
  Transmission Date: 20130627
  Serious: Yes (Death, Other)
  Sender: FDA-Public Use
  Company Number: PHHY2012IT089548

PATIENT
  Age: 56 Year
  Sex: Male

DRUGS (3)
  1. CERTICAN [Suspect]
     Indication: LIVER TRANSPLANT
     Dosage: 1.5 mg, QD
  2. CERTICAN [Suspect]
     Dosage: UNK UKN, UNK
  3. MYCOPHENOLATE SODIUM [Suspect]
     Indication: LIVER TRANSPLANT
     Dosage: 1080 mg, QD

REACTIONS (2)
  - Respiratory failure [Fatal]
  - Pneumonia [Unknown]
